FAERS Safety Report 25760422 (Version 1)
Quarter: 2025Q3

REPORT INFORMATION
  Report Type: Spontaneous
  Country: EU (occurrence: EU)
  Receive Date: 20250904
  Receipt Date: 20250904
  Transmission Date: 20251020
  Serious: Yes (Life-Threatening, Other)
  Sender: CHEPLAPHARM
  Company Number: None

PATIENT
  Age: 45 Year
  Sex: Female

DRUGS (4)
  1. OLANZAPINE [Suspect]
     Active Substance: OLANZAPINE
     Dosage: 5 CP DA 5 MG (25 MG)?DAILY DOSE: 25 MILLIGRAM
     Route: 048
     Dates: start: 20250809, end: 20250809
  2. MIDAZOLAM [Suspect]
     Active Substance: MIDAZOLAM
     Indication: Agitation
     Dates: start: 20250809
  3. VALPROATE SODIUM [Suspect]
     Active Substance: VALPROATE SODIUM
     Dosage: 500MG 6 CP ( 3G)?DAILY DOSE: 3 GRAM
     Route: 048
     Dates: start: 20250809, end: 20250809
  4. WINE [Suspect]
     Active Substance: WINE
     Dates: start: 20250809

REACTIONS (8)
  - Drug abuse [Recovered/Resolved]
  - Respiratory failure [Recovered/Resolved]
  - Self-injurious ideation [Recovered/Resolved]
  - Alcohol abuse [Recovered/Resolved]
  - Anxiety [Recovered/Resolved]
  - Agitation [Recovered/Resolved]
  - Off label use [Unknown]
  - Off label use [Unknown]

NARRATIVE: CASE EVENT DATE: 20250809
